FAERS Safety Report 24137724 (Version 2)
Quarter: 2024Q3

REPORT INFORMATION
  Report Type: Spontaneous
  Country: CO (occurrence: CO)
  Receive Date: 20240725
  Receipt Date: 20240807
  Transmission Date: 20241017
  Serious: Yes (Hospitalization)
  Sender: TEVA
  Company Number: CO-TEVA-VS-3223548

PATIENT
  Age: 70 Year
  Sex: Female

DRUGS (3)
  1. METHOTREXATE [Suspect]
     Active Substance: METHOTREXATE
     Indication: Rheumatoid arthritis
     Route: 065
  2. ACYCLOVIR [Concomitant]
     Active Substance: ACYCLOVIR
     Indication: Antiviral treatment
     Dosage: THERAPY CONTINUED
     Route: 042
  3. ABATACEPT [Suspect]
     Active Substance: ABATACEPT
     Indication: Rheumatoid arthritis
     Route: 065

REACTIONS (6)
  - Coinfection [Recovering/Resolving]
  - Granuloma [Recovering/Resolving]
  - Necrotising retinitis [Recovering/Resolving]
  - Epstein-Barr virus infection [Recovering/Resolving]
  - Toxoplasmosis [Recovering/Resolving]
  - Uveitis [Recovering/Resolving]
